FAERS Safety Report 21734581 (Version 1)
Quarter: 2022Q4

REPORT INFORMATION
  Report Type: Spontaneous
  Country: US (occurrence: US)
  Receive Date: 20221215
  Receipt Date: 20221215
  Transmission Date: 20230113
  Serious: Yes (Death)
  Sender: FDA-Public Use
  Company Number: US-002147023-NVSC2022US290091

PATIENT
  Age: 20 Year

DRUGS (1)
  1. KYMRIAH [Suspect]
     Active Substance: TISAGENLECLEUCEL
     Indication: Product used for unknown indication
     Dosage: 28 ML, ONCE/SINGLE (1.8 X 10^8 CAR-POSITIVE VIABLE T CELLS)
     Route: 042
     Dates: start: 20221116

REACTIONS (1)
  - Remission not achieved [Fatal]

NARRATIVE: CASE EVENT DATE: 20221127
